FAERS Safety Report 25708718 (Version 1)
Quarter: 2025Q3

REPORT INFORMATION
  Report Type: Report from Study
  Country: EU (occurrence: EU)
  Receive Date: 20250821
  Receipt Date: 20250821
  Transmission Date: 20251020
  Serious: Yes (Other)
  Sender: CELLTRION
  Company Number: EU-ROCHE-10000318617

PATIENT

DRUGS (6)
  1. RITUXIMAB [Suspect]
     Active Substance: RITUXIMAB
     Indication: Systemic scleroderma
     Dosage: 1000 MG EVERY 3 MONTHS
     Route: 042
  2. MYCOPHENOLATE MOFETIL [Suspect]
     Active Substance: MYCOPHENOLATE MOFETIL
     Indication: Systemic scleroderma
     Route: 048
  3. SILDENAFIL [Concomitant]
     Active Substance: SILDENAFIL
  4. BOSENTAN [Concomitant]
     Active Substance: BOSENTAN
  5. CYCLOPHOSPHAMIDE [Concomitant]
     Active Substance: CYCLOPHOSPHAMIDE
     Indication: Systemic scleroderma
     Route: 042
  6. NINTEDANIB [Concomitant]
     Active Substance: NINTEDANIB

REACTIONS (3)
  - Basal cell carcinoma [Unknown]
  - Incision site impaired healing [Unknown]
  - Intentional product use issue [Unknown]
